FAERS Safety Report 7338234-9 (Version None)
Quarter: 2011Q1

REPORT INFORMATION
  Report Type: 
  Country: None (occurrence: None)
  Receive Date: 20110308
  Receipt Date: 20110223
  Transmission Date: 20110831
  Serious: Yes (Other)
  Sender: FDA-Public Use
  Company Number: GXKR2009GB11026

PATIENT
  Age: 67 Year
  Sex: Male
  Weight: 76 kg

DRUGS (4)
  1. ALENDRONIC ACID [Suspect]
     Indication: SPINAL FRACTURE
     Dosage: UNK
     Route: 065
     Dates: start: 20000101, end: 20030101
  2. ZOLEDRONIC ACID [Concomitant]
     Dosage: 4 MG, 1/3 MONTHS
     Dates: start: 20030101, end: 20040101
  3. ZOLEDRONIC ACID [Concomitant]
     Dosage: 1 DF, QMO
     Dates: start: 20040101
  4. IBANDRONATE SODIUM [Suspect]
     Dosage: 150 MG, 1/1 MONTH
     Route: 065
     Dates: start: 20040101, end: 20080101

REACTIONS (3)
  - IMPAIRED HEALING [None]
  - PAIN [None]
  - FEMUR FRACTURE [None]
